FAERS Safety Report 5294680-9 (Version None)
Quarter: 2007Q2

REPORT INFORMATION
  Report Type: 
  Country: None (occurrence: None)
  Receive Date: 20070409
  Receipt Date: 20070409
  Transmission Date: 20071010
  Serious: Yes (Other)
  Sender: FDA-Public Use
  Company Number: None

PATIENT
  Age: 29 Year
  Sex: Female

DRUGS (1)
  1. NEULASTA [Suspect]
     Indication: NEUTROPENIA
     Dosage: 6MG  Q14DAYS  SQ (DATES OF USE, DURATION: 3/14/07 + Q2WK PRIOR FOR 6X)
     Route: 058
     Dates: start: 20070314

REACTIONS (1)
  - PALMAR-PLANTAR ERYTHRODYSAESTHESIA SYNDROME [None]
